FAERS Safety Report 9509655 (Version 1)
Quarter: 2013Q3

REPORT INFORMATION
  Report Type: Spontaneous
  Country: US (occurrence: US)
  Receive Date: 20130909
  Receipt Date: 20130909
  Transmission Date: 20140515
  Serious: No
  Sender: FDA-Public Use
  Company Number: US-BRISTOL-MYERS SQUIBB COMPANY-18895409

PATIENT
  Sex: Female
  Weight: 102.94 kg

DRUGS (2)
  1. ABILIFY [Suspect]
     Indication: DEPRESSION
  2. ABILIFY [Suspect]
     Indication: BIPOLAR DISORDER

REACTIONS (6)
  - Thyroid disorder [Unknown]
  - Weight increased [Unknown]
  - Blood glucose increased [Unknown]
  - Sluggishness [Unknown]
  - Eating disorder [Unknown]
  - Fatigue [Unknown]
